FAERS Safety Report 16799877 (Version 1)
Quarter: 2019Q3

REPORT INFORMATION
  Report Type: Spontaneous
  Country: NL (occurrence: NL)
  Receive Date: 20190912
  Receipt Date: 20190912
  Transmission Date: 20191005
  Serious: Yes (Other)
  Sender: FDA-Public Use
  Company Number: NL-PFIZER INC-2018458275

PATIENT
  Age: 72 Year
  Sex: Male

DRUGS (1)
  1. SOMAVERT [Suspect]
     Active Substance: PEGVISOMANT
     Indication: ACROMEGALY
     Dosage: 10 MG, ONCE A DAY
     Route: 058
     Dates: start: 20110316

REACTIONS (3)
  - Product dose omission [Unknown]
  - Limb mass [Not Recovered/Not Resolved]
  - Peripheral swelling [Unknown]
